FAERS Safety Report 8885587 (Version 1)
Quarter: 2012Q4

REPORT INFORMATION
  Report Type: 
  Country: US (occurrence: US)
  Receive Date: 20121101
  Receipt Date: 20121101
  Transmission Date: 20130627
  Serious: No
  Sender: FDA-Public Use
  Company Number: US-PFIZER INC-2012267962

PATIENT
  Age: 53 Year
  Sex: Female

DRUGS (1)
  1. PROCARDIA [Suspect]

REACTIONS (5)
  - Muscle spasms [Unknown]
  - Headache [Unknown]
  - Dyspnoea [Unknown]
  - Syncope [Unknown]
  - Feeling abnormal [Unknown]
